FAERS Safety Report 16799396 (Version 1)
Quarter: 2019Q3

REPORT INFORMATION
  Report Type: Spontaneous
  Country: SE (occurrence: SE)
  Receive Date: 20190912
  Receipt Date: 20190912
  Transmission Date: 20191005
  Serious: Yes (Hospitalization, Other)
  Sender: FDA-Public Use
  Company Number: SE-PFIZER INC-2019388281

PATIENT
  Sex: Male

DRUGS (3)
  1. LERGIGAN (PROMETHAZINE HYDROCHLORIDE) [Suspect]
     Active Substance: PROMETHAZINE HYDROCHLORIDE
     Dosage: UNK (^^20, DAY DOSES^^)
     Route: 048
     Dates: start: 201905, end: 201905
  2. MIRTAZAPINE. [Suspect]
     Active Substance: MIRTAZAPINE
     Dosage: 1 G, UNK
     Route: 048
     Dates: start: 201905, end: 201905
  3. SERTRALINE HCL [Suspect]
     Active Substance: SERTRALINE HYDROCHLORIDE
     Dosage: 1 G, UNK
     Route: 048
     Dates: start: 201905, end: 201905

REACTIONS (4)
  - Intentional overdose [Unknown]
  - Confusional state [Unknown]
  - Syncope [Unknown]
  - Intentional self-injury [Unknown]

NARRATIVE: CASE EVENT DATE: 201905
